FAERS Safety Report 12459669 (Version 2)
Quarter: 2016Q3

REPORT INFORMATION
  Report Type: Spontaneous
  Country: US (occurrence: US)
  Receive Date: 20160613
  Receipt Date: 20160805
  Transmission Date: 20161109
  Serious: Yes (Other)
  Sender: FDA-Public Use
  Company Number: US-PFIZER INC-2016283128

PATIENT
  Age: 73 Year
  Sex: Female
  Weight: 67.12 kg

DRUGS (2)
  1. IBRANCE [Suspect]
     Active Substance: PALBOCICLIB
     Indication: BREAST CANCER
  2. IBRANCE [Suspect]
     Active Substance: PALBOCICLIB
     Indication: BREAST CANCER METASTATIC
     Dosage: 125 MG, CYCLIC (DAYS 1-21 Q28 DAYS)
     Route: 048
     Dates: start: 20160505

REACTIONS (11)
  - Malaise [Unknown]
  - Disease progression [Unknown]
  - White blood cell count decreased [Unknown]
  - Atrial fibrillation [Unknown]
  - Cough [Not Recovered/Not Resolved]
  - Decreased appetite [Unknown]
  - Breast cancer [Unknown]
  - Cardiac disorder [Unknown]
  - Feeling abnormal [Unknown]
  - Body temperature increased [Unknown]
  - Blood pressure decreased [Unknown]
